FAERS Safety Report 5072623-0 (Version None)
Quarter: 2006Q3

REPORT INFORMATION
  Report Type: 
  Country: None (occurrence: None)
  Receive Date: 20060807
  Receipt Date: 20060803
  Transmission Date: 20061208
  Serious: Yes (Other)
  Sender: FDA-Public Use
  Company Number: US-GLAXOSMITHKLINE-A0615082A

PATIENT
  Age: 63 Year
  Sex: Male

DRUGS (5)
  1. AVANDAMET [Suspect]
     Indication: DIABETES MELLITUS NON-INSULIN-DEPENDENT
     Dosage: 1TAB TWICE PER DAY
     Route: 048
     Dates: start: 20030101
  2. AVANDIA [Suspect]
     Indication: DIABETES MELLITUS NON-INSULIN-DEPENDENT
     Route: 048
  3. ALTACE [Concomitant]
  4. VYTORIN [Concomitant]
  5. METFORMIN [Concomitant]

REACTIONS (7)
  - BLINDNESS [None]
  - CATARACT [None]
  - DRUG INEFFECTIVE [None]
  - ILLITERACY [None]
  - INTRAOCULAR PRESSURE INCREASED [None]
  - MACULOPATHY [None]
  - VISION BLURRED [None]
